FAERS Safety Report 5669323-2 (Version None)
Quarter: 2008Q1

REPORT INFORMATION
  Report Type: 
  Country: None (occurrence: None)
  Receive Date: 20080317
  Receipt Date: 20080307
  Transmission Date: 20080703
  Serious: Yes (Disabling, Other)
  Sender: FDA-Public Use
  Company Number: PHHY2008CA02538

PATIENT
  Age: 66 Year
  Sex: Female

DRUGS (9)
  1. EXELON [Suspect]
     Indication: DEMENTIA ALZHEIMER'S TYPE
     Dosage: 1.5 MG/DAY
     Route: 048
     Dates: start: 20080115, end: 20080202
  2. LOSEC I.V. [Concomitant]
  3. PAXIL [Concomitant]
     Dosage: 20 MG, QD
  4. ALTACE [Concomitant]
     Dosage: 2.5 MG, QD
  5. ESTRADERM [Concomitant]
     Dosage: 1 OD
  6. ACETAMINOPHEN [Concomitant]
     Dosage: 500 MG Q6H,  PRN
     Route: 048
  7. MOBIC [Concomitant]
     Dosage: 7.5 MG, BID
  8. VITAMIN D [Concomitant]
     Dosage: 500 MG/DAY
  9. FOSAMAX [Concomitant]

REACTIONS (5)
  - ABASIA [None]
  - NAUSEA [None]
  - PARAESTHESIA [None]
  - VISUAL DISTURBANCE [None]
  - VOMITING [None]
